FAERS Safety Report 20230540 (Version 1)
Quarter: 2021Q4

REPORT INFORMATION
  Report Type: Report from Study
  Country: DE (occurrence: DE)
  Receive Date: 20211227
  Receipt Date: 20211227
  Transmission Date: 20220303
  Serious: Yes (Hospitalization, Other)
  Sender: FDA-Public Use
  Company Number: DE-AMGEN-DEUNI2018067137

PATIENT
  Sex: Male
  Weight: 63 kg

DRUGS (6)
  1. DEXAMETHASONE ISONICOTINATE\TRAMAZOLINE HYDROCHLORIDE [Suspect]
     Active Substance: DEXAMETHASONE ISONICOTINATE\TRAMAZOLINE HYDROCHLORIDE
     Indication: Plasma cell myeloma
     Route: 065
     Dates: start: 20180509
  2. LENALIDOMIDE [Suspect]
     Active Substance: LENALIDOMIDE
     Indication: Plasma cell myeloma
     Route: 065
     Dates: start: 20180509, end: 20180511
  3. CARFILZOMIB [Suspect]
     Active Substance: CARFILZOMIB
     Indication: Plasma cell myeloma
     Route: 042
     Dates: start: 20180509
  4. CARFILZOMIB [Suspect]
     Active Substance: CARFILZOMIB
     Route: 042
     Dates: start: 20180511
  5. KYPROLIS [Suspect]
     Active Substance: CARFILZOMIB
     Indication: Plasma cell myeloma
     Route: 042
     Dates: start: 20180509, end: 20180511
  6. METFORMIN [Concomitant]
     Active Substance: METFORMIN HYDROCHLORIDE
     Indication: Diabetes mellitus
     Dates: start: 2008

REACTIONS (2)
  - Acute kidney injury [Not Recovered/Not Resolved]
  - Oliguria [Not Recovered/Not Resolved]

NARRATIVE: CASE EVENT DATE: 20180514
